FAERS Safety Report 6979546-8 (Version None)
Quarter: 2010Q3

REPORT INFORMATION
  Report Type: 
  Country: None (occurrence: None)
  Receive Date: 20100913
  Receipt Date: 20100907
  Transmission Date: 20110219
  Serious: Yes (Life-Threatening, Hospitalization)
  Sender: FDA-Public Use
  Company Number: PHHY2010US59655

PATIENT
  Sex: Female

DRUGS (19)
  1. RECLAST [Suspect]
     Indication: SPINAL FRACTURE
     Dosage: UNK
     Dates: start: 20100507
  2. ANTIBIOTICS [Suspect]
  3. LASIX [Concomitant]
     Dosage: 160 MG
  4. ASPIRIN [Concomitant]
     Dosage: 81 MG
  5. ZOLOFT [Concomitant]
     Dosage: 75 MG
  6. MAGNESIUM OXIDE [Concomitant]
     Dosage: 400 MG
  7. ALDACTONE [Concomitant]
     Dosage: 50 MG
  8. DIOVAN [Concomitant]
     Dosage: 40 MG
  9. LORATADINE [Concomitant]
  10. DIGOXIN [Concomitant]
     Dosage: 1.25
  11. REQUIP [Concomitant]
     Dosage: 0.25 MG
  12. TOPRAL [Concomitant]
     Dosage: 12.5 MG
  13. COUMADIN [Concomitant]
  14. SINGULAIR [Concomitant]
  15. VITAMIN D [Concomitant]
  16. MULTI-VITAMINS [Concomitant]
  17. IRON [Concomitant]
  18. SEREVENT [Concomitant]
  19. FLOVENT [Concomitant]

REACTIONS (8)
  - ANAPHYLACTIC REACTION [None]
  - ASTHENIA [None]
  - BACK PAIN [None]
  - FATIGUE [None]
  - FEELING ABNORMAL [None]
  - LOSS OF CONSCIOUSNESS [None]
  - MALAISE [None]
  - PYREXIA [None]
